FAERS Safety Report 6121697-4 (Version None)
Quarter: 2009Q1

REPORT INFORMATION
  Report Type: 
  Country: None (occurrence: None)
  Receive Date: 20090317
  Receipt Date: 20080828
  Transmission Date: 20090719
  Serious: Yes (Hospitalization, Other)
  Sender: FDA-Public Use
  Company Number: NL-ELI_LILLY_AND_COMPANY-NL200707002948

PATIENT
  Sex: Female

DRUGS (10)
  1. SOMATROPIN [Suspect]
     Indication: GROWTH HORMONE DEFICIENCY
     Dosage: 0.4 MG, DAILY (1/D)
     Route: 058
     Dates: start: 19920101
  2. THYROXINE [Concomitant]
     Indication: SECONDARY HYPOTHYROIDISM
     Dosage: UNK, UNK
     Dates: start: 19920101
  3. HYDROCORTISON [Concomitant]
     Indication: SECONDARY ADRENOCORTICAL INSUFFICIENCY
     Dosage: UNK, UNK
     Dates: start: 19920101
  4. ZOCOR [Concomitant]
     Indication: HYPERCHOLESTEROLAEMIA
     Dosage: UNK, UNK
     Dates: start: 19950101
  5. HUMIRA [Concomitant]
     Indication: RHEUMATOID ARTHRITIS
     Dosage: UNK, UNK
     Dates: start: 20060101
  6. FOLIC ACID [Concomitant]
     Indication: RHEUMATOID ARTHRITIS
  7. PLAQUENIL [Concomitant]
     Indication: RHEUMATOID ARTHRITIS
     Dosage: UNK, UNK
     Dates: start: 20030101
  8. FOSAMAX [Concomitant]
     Indication: OSTEOPOROSIS
  9. CALCICHEW D3 [Concomitant]
     Indication: OSTEOPOROSIS
  10. METHOTREXATE [Concomitant]
     Indication: RHEUMATOID ARTHRITIS
     Dates: start: 20060101

REACTIONS (6)
  - ADRENAL INSUFFICIENCY [None]
  - ANGINA PECTORIS [None]
  - CORONARY ARTERY DISEASE [None]
  - LOSS OF CONSCIOUSNESS [None]
  - SYNCOPE [None]
  - VOMITING [None]
